FAERS Safety Report 5674304-9 (Version None)
Quarter: 2008Q1

REPORT INFORMATION
  Report Type: 
  Country: None (occurrence: None)
  Receive Date: 20080320
  Receipt Date: 20080314
  Transmission Date: 20080703
  Serious: Yes (Hospitalization, Other)
  Sender: FDA-Public Use
  Company Number: AT-BAYER-200814573GPV

PATIENT
  Age: 45 Year
  Sex: Male

DRUGS (1)
  1. AVELOX [Suspect]
     Indication: PNEUMONIA
     Dosage: TOTAL DAILY DOSE: 800 MG  UNIT DOSE: 400 MG
     Route: 048
     Dates: start: 20080211, end: 20080220

REACTIONS (6)
  - ABASIA [None]
  - BURNING SENSATION [None]
  - DIZZINESS [None]
  - MUSCULOSKELETAL STIFFNESS [None]
  - PAIN [None]
  - SENSORY DISTURBANCE [None]
